FAERS Safety Report 23396433 (Version 2)
Quarter: 2024Q1

REPORT INFORMATION
  Report Type: Spontaneous
  Country: AT (occurrence: AT)
  Receive Date: 20240112
  Receipt Date: 20240203
  Transmission Date: 20240409
  Serious: Yes (Other)
  Sender: FDA-Public Use
  Company Number: AT-Accord-400437

PATIENT
  Age: 49 Year
  Sex: Male

DRUGS (10)
  1. CLOZAPINE [Suspect]
     Active Substance: CLOZAPINE
     Indication: Schizophrenia
     Route: 048
     Dates: start: 202201, end: 202209
  2. AMISULPRIDE [Concomitant]
     Active Substance: AMISULPRIDE
     Indication: Schizophrenia
     Dates: start: 202201, end: 202209
  3. SERTRALINE [Concomitant]
     Active Substance: SERTRALINE HYDROCHLORIDE
     Indication: Schizophrenia
     Dosage: 100 MG/DAY
  4. TRAZODONE [Concomitant]
     Active Substance: TRAZODONE HYDROCHLORIDE
     Indication: Schizophrenia
     Dosage: 150 MG/DAY
  5. LORAZEPAM [Concomitant]
     Active Substance: LORAZEPAM
     Indication: Schizophrenia
     Dosage: 2 MG/DAY
  6. PROPRANOLOL [Concomitant]
     Active Substance: PROPRANOLOL HYDROCHLORIDE
     Indication: Schizophrenia
     Dosage: 15 MG/DAY
  7. CLOZAPINE [Suspect]
     Active Substance: CLOZAPINE
     Indication: Hallucination
     Route: 048
     Dates: start: 202201, end: 202209
  8. AMISULPRIDE [Concomitant]
     Active Substance: AMISULPRIDE
     Indication: Hallucination
  9. AMISULPRIDE [Concomitant]
     Active Substance: AMISULPRIDE
     Indication: Anxiety
  10. CLOZAPINE [Suspect]
     Active Substance: CLOZAPINE
     Indication: Anxiety
     Route: 048
     Dates: start: 202201, end: 202209

REACTIONS (2)
  - Salivary hypersecretion [Unknown]
  - Schizophrenia [Unknown]

NARRATIVE: CASE EVENT DATE: 20220101
